FAERS Safety Report 20667501 (Version 6)
Quarter: 2022Q4

REPORT INFORMATION
  Report Type: Spontaneous
  Country: IL (occurrence: IL)
  Receive Date: 20220404
  Receipt Date: 20221110
  Transmission Date: 20230112
  Serious: Yes (Life-Threatening, Hospitalization, Other)
  Sender: FDA-Public Use
  Company Number: IL-Y-MABS THERAPEUTICS, INC.-EAP2022-IL-000565

PATIENT

DRUGS (15)
  1. DANYELZA [Suspect]
     Active Substance: NAXITAMAB-GQGK
     Indication: Neuroblastoma recurrent
     Dosage: REGIMEN #1 (CYCLOPHOSPHAMIDE AND TOPOTECAN)
     Route: 042
     Dates: start: 20211215, end: 20211215
  2. DANYELZA [Suspect]
     Active Substance: NAXITAMAB-GQGK
     Dosage: CYCLE 1, DOSE 1 (HITS, DAY 2)
     Route: 042
     Dates: start: 20220105, end: 20220105
  3. DANYELZA [Suspect]
     Active Substance: NAXITAMAB-GQGK
     Dosage: CYCLE 1, DOSE 2 (HITS, DAY 4)
     Route: 042
     Dates: start: 20220107, end: 20220107
  4. DANYELZA [Suspect]
     Active Substance: NAXITAMAB-GQGK
     Dosage: CYCLE UNKNOWN, DOSE UNKNOWN
     Route: 042
     Dates: start: 20220112, end: 20220112
  5. DANYELZA [Suspect]
     Active Substance: NAXITAMAB-GQGK
     Dosage: CYCLE UNKNOWN, DOSE UNKNOWN
     Route: 042
     Dates: start: 20220221, end: 20220221
  6. GRANULOCYTE-MACROPHAGE COLONY-STIMULATING FACTOR [Concomitant]
     Active Substance: GRANULOCYTE-MACROPHAGE COLONY-STIMULATING FACTOR
     Indication: Neuroblastoma recurrent
     Dosage: UNK
  7. IRINOTECAN [Concomitant]
     Active Substance: IRINOTECAN
     Indication: Neuroblastoma recurrent
     Dosage: UNK
  8. TEMOZOLOMIDE [Concomitant]
     Active Substance: TEMOZOLOMIDE
     Indication: Neuroblastoma recurrent
     Dosage: UNK
  9. OXYCODONE [Concomitant]
     Active Substance: OXYCODONE
     Dosage: UNK
  10. CLONAZEPAM [Concomitant]
     Active Substance: CLONAZEPAM
     Dosage: UNK
  11. CYCLOPHOSPHAMIDE [Concomitant]
     Active Substance: CYCLOPHOSPHAMIDE
     Indication: Neuroblastoma recurrent
     Dosage: REGIMEN #1
     Dates: start: 20211215
  12. TOPOTECAN HYDROCHLORIDE [Concomitant]
     Active Substance: TOPOTECAN HYDROCHLORIDE
     Indication: Neuroblastoma recurrent
     Dosage: REGIMEN #1
     Dates: start: 20211215
  13. OXYCODONE [Concomitant]
     Active Substance: OXYCODONE
     Indication: Premedication
     Dosage: UNK
  14. MESNA [Concomitant]
     Active Substance: MESNA
  15. PIPERACILLIN AND TAZOBACTAM [Concomitant]
     Active Substance: PIPERACILLIN SODIUM\TAZOBACTAM SODIUM

REACTIONS (20)
  - Anaphylactic reaction [Recovered/Resolved]
  - Swelling face [Unknown]
  - Pain [Recovered/Resolved]
  - Depressed level of consciousness [Unknown]
  - Pain [Unknown]
  - Dysphonia [Unknown]
  - Hypersensitivity [Unknown]
  - Somnolence [Unknown]
  - Hypertension [Unknown]
  - Full blood count decreased [Unknown]
  - Posterior reversible encephalopathy syndrome [Recovered/Resolved]
  - Neutropenia [Unknown]
  - Tachycardia [Unknown]
  - Paraesthesia [Recovered/Resolved]
  - Pallor [Recovered/Resolved]
  - Cyanosis [Recovered/Resolved]
  - Rash papular [Unknown]
  - Oxygen saturation decreased [Unknown]
  - Hypertension [Recovered/Resolved]
  - Swollen tongue [Unknown]

NARRATIVE: CASE EVENT DATE: 20220101
